FAERS Safety Report 7805090-1 (Version None)
Quarter: 2011Q4

REPORT INFORMATION
  Report Type: 
  Country: None (occurrence: None)
  Receive Date: 20111010
  Receipt Date: 20110927
  Transmission Date: 20120403
  Serious: Yes (Other)
  Sender: FDA-Public Use
  Company Number: PHHY2011JP82605

PATIENT
  Age: 83 Year
  Sex: Female

DRUGS (3)
  1. PREDNISOLONE [Concomitant]
     Indication: NEPHROTIC SYNDROME
     Dosage: 30 MG/ DAY
     Route: 048
  2. CYCLOSPORINE [Suspect]
     Indication: NEPHROTIC SYNDROME
     Dosage: 75 MG/ DAY
     Route: 048
     Dates: end: 20110201
  3. PREDNISOLONE [Concomitant]
     Dosage: 20 MG/ DAY

REACTIONS (3)
  - GASTRIC CANCER [None]
  - GASTRITIS EROSIVE [None]
  - RENAL DISORDER [None]
